FAERS Safety Report 17883426 (Version 1)
Quarter: 2020Q2

REPORT INFORMATION
  Report Type: Spontaneous
  Country: TH (occurrence: TH)
  Receive Date: 20200611
  Receipt Date: 20200611
  Transmission Date: 20200714
  Serious: Yes (Other)
  Sender: FDA-Public Use
  Company Number: TH-GLAXOSMITHKLINE-TH2020APC094530

PATIENT
  Age: 59 Year
  Sex: Female

DRUGS (1)
  1. ANORO ELLIPTA [Suspect]
     Active Substance: UMECLIDINIUM BROMIDE\VILANTEROL TRIFENATATE
     Indication: PRODUCT USED FOR UNKNOWN INDICATION
     Dosage: UNK, 62.5/25
     Dates: start: 20200520

REACTIONS (1)
  - Urinary tract obstruction [Unknown]

NARRATIVE: CASE EVENT DATE: 20200604
